FAERS Safety Report 4748122-X (Version None)
Quarter: 2005Q3

REPORT INFORMATION
  Report Type: 
  Country: None (occurrence: None)
  Receive Date: 20050816
  Receipt Date: 20050726
  Transmission Date: 20060218
  Serious: Yes (Death)
  Sender: FDA-Public Use
  Company Number: 02100-USA-02-0154

PATIENT
  Age: 67 Year
  Sex: Male

DRUGS (6)
  1. CILOSTAZOL [Suspect]
     Indication: INTERMITTENT CLAUDICATION
     Dosage: 200 MG/100 MG
     Route: 048
     Dates: start: 20020620, end: 20020622
  2. CILOSTAZOL [Suspect]
     Indication: INTERMITTENT CLAUDICATION
     Dosage: 200 MG/100 MG
     Route: 048
     Dates: start: 20020620, end: 20020622
  3. HYDROCHLOROTHIAZIDE [Concomitant]
  4. AMLODIPINE BESILATE [Concomitant]
  5. LISINOPRIL [Concomitant]
  6. PRAVASTATIN SODIUM [Concomitant]

REACTIONS (5)
  - CORONARY ARTERY DISEASE [None]
  - DRESSLER'S SYNDROME [None]
  - FALL [None]
  - HYPERTENSIVE HEART DISEASE [None]
  - SUDDEN CARDIAC DEATH [None]
